FAERS Safety Report 9313618 (Version 2)
Quarter: 2013Q2

REPORT INFORMATION
  Report Type: Spontaneous
  Country: US (occurrence: US)
  Receive Date: 20130528
  Receipt Date: 20130606
  Transmission Date: 20140414
  Serious: Yes (Death, Hospitalization)
  Sender: FDA-Public Use
  Company Number: US-B.I. PHARMACEUTICALS,INC./RIDGEFIELD-2013-BI-14795BP

PATIENT
  Age: 87 Year
  Sex: Female
  Weight: 70.31 kg

DRUGS (7)
  1. PRADAXA [Suspect]
     Indication: ATRIAL FIBRILLATION
     Dosage: 150 MG
     Dates: start: 20111123
  2. ACTONEL [Concomitant]
     Dosage: 5 MG
  3. ZOCOR [Concomitant]
     Dosage: 20 MG
  4. NITRO PATCH [Concomitant]
     Dosage: 0.1 MG
  5. LASIX [Concomitant]
     Dosage: 20 MG
  6. LOPRESSOR [Concomitant]
     Dosage: 150 MG
  7. DILTIAZEM [Concomitant]

REACTIONS (1)
  - Embolic stroke [Fatal]
